FAERS Safety Report 25260603 (Version 2)
Quarter: 2025Q2

REPORT INFORMATION
  Report Type: Spontaneous
  Country: CN (occurrence: CN)
  Receive Date: 20250501
  Receipt Date: 20250510
  Transmission Date: 20250717
  Serious: Yes (Life-Threatening, Other)
  Sender: NOVO NORDISK
  Company Number: CN-NOVOPROD-1407110

PATIENT

DRUGS (2)
  1. NOVOSEVEN [Suspect]
     Active Substance: COAGULATION FACTOR VIIA RECOMBINANT HUMAN
     Indication: Haemorrhage
  2. NOVOSEVEN [Suspect]
     Active Substance: COAGULATION FACTOR VIIA RECOMBINANT HUMAN
     Indication: Aplastic anaemia

REACTIONS (6)
  - Shock haemorrhagic [Unknown]
  - Haemorrhage [Unknown]
  - Bone marrow transplant [Unknown]
  - Bone marrow transplant rejection [Unknown]
  - Haemorrhage [Unknown]
  - Off label use [Unknown]
